FAERS Safety Report 22678528 (Version 12)
Quarter: 2025Q1

REPORT INFORMATION
  Report Type: Spontaneous
  Country: US (occurrence: US)
  Receive Date: 20230706
  Receipt Date: 20250106
  Transmission Date: 20250409
  Serious: Yes (Hospitalization, Other)
  Sender: PFIZER
  Company Number: US-PFIZER INC-202300237586

PATIENT
  Age: 73 Year
  Sex: Female
  Weight: 65.77 kg

DRUGS (5)
  1. IBRANCE [Suspect]
     Active Substance: PALBOCICLIB
     Indication: Breast cancer metastatic
     Route: 048
     Dates: start: 201908
  2. IBRANCE [Suspect]
     Active Substance: PALBOCICLIB
     Dates: start: 2020
  3. IBRANCE [Suspect]
     Active Substance: PALBOCICLIB
     Route: 048
     Dates: start: 202212
  4. IBRANCE [Suspect]
     Active Substance: PALBOCICLIB
  5. ANASTROZOLE [Concomitant]
     Active Substance: ANASTROZOLE
     Indication: Breast cancer female
     Dosage: 1 MG, DAILY

REACTIONS (19)
  - Hip fracture [Unknown]
  - Second primary malignancy [Unknown]
  - Thyroid cancer [Unknown]
  - Fall [Unknown]
  - Weight increased [Unknown]
  - Erythema [Unknown]
  - Blood potassium decreased [Unknown]
  - Neoplasm progression [Unknown]
  - Illness [Not Recovered/Not Resolved]
  - Vision blurred [Unknown]
  - Pain [Unknown]
  - Peripheral swelling [Unknown]
  - Oedema peripheral [Unknown]
  - Skin exfoliation [Unknown]
  - Dry skin [Unknown]
  - Pain in extremity [Unknown]
  - Chest pain [Recovered/Resolved]
  - Off label use [Unknown]
  - Product use issue [Unknown]

NARRATIVE: CASE EVENT DATE: 20240101
